FAERS Safety Report 7609555-7 (Version None)
Quarter: 2011Q3

REPORT INFORMATION
  Report Type: 
  Country: None (occurrence: None)
  Receive Date: 20110706
  Receipt Date: 20110621
  Transmission Date: 20111222
  Serious: Yes (Hospitalization)
  Sender: FDA-Public Use
  Company Number: 1000021902

PATIENT
  Age: 36 Year
  Sex: Female

DRUGS (18)
  1. FAMVIR [Suspect]
     Indication: PYREXIA
     Dosage: 1000 MG (500 MG,2 IN 1 D),ORAL
     Route: 048
     Dates: start: 20110405, end: 20110412
  2. MOTILIUM (DOMPERIDONE)(TABLETS)(DOMPERIDONE) [Concomitant]
  3. PASPERTIN (METOCLOPRAMIDE HYDROCHLORIDE)(TABLETS)(METOCLOPRAMIDE HYDRO [Concomitant]
  4. ESCITALOPRAM [Suspect]
     Indication: BIPOLAR DISORDER
     Dosage: 10 MG (10 MG, 1 IN 1 D),ORAL
     Route: 048
     Dates: start: 20110308, end: 20110421
  5. MEROPENEM [Suspect]
     Indication: PYREXIA
     Dosage: 3 G (1 GM, 3 IN 1 0) , INTRAVENOUS
     Route: 042
     Dates: start: 20110407, end: 20110414
  6. TAZOBAC (PIP/TAZO)(PIP/TAZO) [Concomitant]
  7. NEXIUM (ESOMEPRAZOLE MAGNESIUM)(TABLETS)(ESOMEPRAZOLE MAGNESIUM) [Concomitant]
  8. BUSCOPAN COMP (BUSCOPAN COMP.) (BUSCOPAN COMP.) [Concomitant]
  9. IDARUBICIN HYDROCHLORIDE [Suspect]
     Indication: MYELODYSPLASTIC SYNDROME
     Dosage: 12 MG/M2 (12 MG/M2,1 IN 1 D),INTRAVENOUS (NOT OTHERWISE SPECIFIED)
     Route: 042
     Dates: start: 20110310, end: 20110312
  10. PRIMOLUT N (NORETHISTERONE)(NORETHISTERONE) [Concomitant]
  11. AMSIDYL [Suspect]
     Indication: MYELODYSPLASTIC SYNDROME
     Dosage: 120 MG/M2 (120 MG/M2,1 IN1 D)
     Dates: start: 20110329, end: 20110403
  12. CANCIDAS [Suspect]
     Indication: PYREXIA
     Dosage: 70 MG (70 MG, 1 IN 1 D),ORAL
     Route: 048
     Dates: start: 20110407, end: 20110412
  13. VFEND (VORICONAZOLE)(VORICONAZOLE) [Concomitant]
  14. FLAGYL (METRONIDAZOLE) (METRONIDAZOLE) [Concomitant]
  15. CYTOSAR-U [Suspect]
     Indication: MYELODYSPLASTIC SYNDROME
     Dosage: 2000 MG/M2 (1000 MG/M2,2 IN 1 D),OTHER
     Route: 050
     Dates: start: 20110329, end: 20110403
  16. ZOLPIDEM [Concomitant]
  17. PERFALGAN (PARACETAMOL) (PARACETAMOL) [Concomitant]
  18. DEXAMETHASON (DEXAMETHASONE) (DEXAMETHASONE) [Concomitant]

REACTIONS (17)
  - HEPATOCELLULAR INJURY [None]
  - APHASIA [None]
  - SEROTONIN SYNDROME [None]
  - RASH [None]
  - SKIN TOXICITY [None]
  - LOSS OF CONSCIOUSNESS [None]
  - TREMOR [None]
  - RHABDOMYOLYSIS [None]
  - COAGULOPATHY [None]
  - FEBRILE NEUTROPENIA [None]
  - DIZZINESS [None]
  - CONFUSIONAL STATE [None]
  - COORDINATION ABNORMAL [None]
  - INTERNATIONAL NORMALISED RATIO INCREASED [None]
  - APRAXIA [None]
  - CYTARABINE SYNDROME [None]
  - HYPERREFLEXIA [None]
